FAERS Safety Report 4339153-2 (Version None)
Quarter: 2004Q2

REPORT INFORMATION
  Report Type: 
  Country: None (occurrence: None)
  Receive Date: 20040412
  Receipt Date: 20040329
  Transmission Date: 20050107
  Serious: Yes (Hospitalization)
  Sender: FDA-Public Use
  Company Number: 2004-BP-00742NB

PATIENT
  Age: 53 Year
  Sex: Female

DRUGS (1)
  1. MOBIC [Suspect]
     Indication: RHEUMATOID ARTHRITIS
     Dosage: 10 MG
     Route: 048
     Dates: start: 20031201, end: 20040119

REACTIONS (1)
  - ALVEOLITIS ALLERGIC [None]
